FAERS Safety Report 7358515-2 (Version None)
Quarter: 2011Q1

REPORT INFORMATION
  Report Type: 
  Country: None (occurrence: None)
  Receive Date: 20110317
  Receipt Date: 20110315
  Transmission Date: 20110831
  Serious: Yes (Disabling, Other)
  Sender: FDA-Public Use
  Company Number: AU-PFIZER INC-2011034839

PATIENT
  Age: 68 Year
  Sex: Female
  Weight: 65 kg

DRUGS (4)
  1. SOMAC [Concomitant]
     Indication: DYSPEPSIA
     Dosage: 40 MG, 1X/DAY IN THE MORNING
     Route: 048
     Dates: start: 20050101
  2. MIRTAZAPINE [Concomitant]
     Indication: ANXIETY
     Dosage: 15 MG, 1X/DAY AT NIGHT
     Route: 048
     Dates: start: 20080101
  3. LIPITOR [Suspect]
     Indication: HYPERLIPIDAEMIA
     Dosage: 10 MG, 1X/DAY
     Route: 048
     Dates: end: 20101201
  4. NATRILIX [Concomitant]
     Indication: BLOOD PRESSURE
     Dosage: 1.5 MG, 1X/DAY IN THE MORNING
     Route: 048
     Dates: start: 20090101

REACTIONS (3)
  - ABDOMINAL PAIN [None]
  - GASTRIC HAEMORRHAGE [None]
  - MUSCULOSKELETAL CHEST PAIN [None]
